FAERS Safety Report 7288198-1 (Version None)
Quarter: 2011Q1

REPORT INFORMATION
  Report Type: 
  Country: None (occurrence: None)
  Receive Date: 20110211
  Receipt Date: 20110131
  Transmission Date: 20110831
  Serious: Yes (Hospitalization, Congenital Anomaly, Other)
  Sender: FDA-Public Use
  Company Number: CN-ACTELION-A-US2011-44651

PATIENT
  Weight: 1.4 kg

DRUGS (3)
  1. VENTAVIS [Suspect]
     Indication: DRUG EXPOSURE DURING PREGNANCY
     Route: 064
  2. ALPROSTADIL [Concomitant]
  3. OXYGEN [Concomitant]

REACTIONS (5)
  - MITRAL VALVE PROLAPSE [None]
  - PATENT DUCTUS ARTERIOSUS [None]
  - DRUG EXPOSURE DURING PREGNANCY [None]
  - PREMATURE BABY [None]
  - CARDIAC OPERATION [None]
